FAERS Safety Report 6124923-0 (Version None)
Quarter: 2009Q1

REPORT INFORMATION
  Report Type: 
  Country: None (occurrence: None)
  Receive Date: 20090319
  Receipt Date: 20090310
  Transmission Date: 20090719
  Serious: Yes (Death)
  Sender: FDA-Public Use
  Company Number: US-AMGEN-US337988

PATIENT
  Sex: Male

DRUGS (3)
  1. NPLATE [Suspect]
     Indication: DRUG USE FOR UNKNOWN INDICATION
     Route: 058
     Dates: start: 20081117, end: 20081117
  2. CORTICOSTEROID NOS [Concomitant]
     Route: 065
     Dates: start: 20081117
  3. RITUXIMAB [Concomitant]
     Route: 065

REACTIONS (1)
  - DEATH [None]
